FAERS Safety Report 13579018 (Version 9)
Quarter: 2018Q1

REPORT INFORMATION
  Report Type: Spontaneous
  Country: JP (occurrence: JP)
  Receive Date: 20170524
  Receipt Date: 20180319
  Transmission Date: 20180508
  Serious: Yes (Death, Hospitalization, Other)
  Sender: FDA-Public Use
  Company Number: JP-009507513-1703JPN001555J

PATIENT
  Age: 66 Year
  Sex: Female
  Weight: 50 kg

DRUGS (2)
  1. METOCLOPRAMIDE. [Suspect]
     Active Substance: METOCLOPRAMIDE
     Dosage: UNK
     Route: 048
     Dates: start: 20170310
  2. KEYTRUDA [Suspect]
     Active Substance: PEMBROLIZUMAB
     Indication: LUNG ADENOCARCINOMA STAGE III
     Dosage: 200 MG, Q3W
     Route: 041
     Dates: start: 20170307, end: 20170329

REACTIONS (7)
  - Breast discomfort [Recovered/Resolved]
  - Pyrexia [Unknown]
  - Hepatic function abnormal [Unknown]
  - Decreased appetite [Recovering/Resolving]
  - Rash generalised [Unknown]
  - Malignant neoplasm progression [Fatal]
  - Cellulitis [Recovering/Resolving]

NARRATIVE: CASE EVENT DATE: 20170315
